FAERS Safety Report 7965949-1 (Version None)
Quarter: 2011Q4

REPORT INFORMATION
  Report Type: 
  Country: None (occurrence: None)
  Receive Date: 20111208
  Receipt Date: 20111206
  Transmission Date: 20120403
  Serious: No
  Sender: FDA-Public Use
  Company Number: US-PFIZER INC-2011298347

PATIENT
  Sex: Male
  Weight: 68.027 kg

DRUGS (2)
  1. KLONOPIN [Concomitant]
     Indication: SLEEP DISORDER
     Dosage: 1.5 MG, DAILY
  2. LYRICA [Suspect]
     Indication: PAIN
     Dosage: 25 MG, DAILY
     Route: 048
     Dates: start: 20110101

REACTIONS (1)
  - VISION BLURRED [None]
